FAERS Safety Report 16707144 (Version 4)
Quarter: 2024Q1

REPORT INFORMATION
  Report Type: Spontaneous
  Country: DE (occurrence: DE)
  Receive Date: 20190815
  Receipt Date: 20240103
  Transmission Date: 20240410
  Serious: Yes (Other)
  Sender: FDA-Public Use
  Company Number: DE-TEVA-2019-DE-1089774

PATIENT
  Weight: 78.7 kg

DRUGS (11)
  1. SOTALOL [Suspect]
     Active Substance: SOTALOL
     Indication: Ventricular tachycardia
     Route: 048
     Dates: start: 20190405, end: 20190621
  2. ALLOPURINOL [Concomitant]
     Active Substance: ALLOPURINOL
     Indication: Hyperlipidaemia
     Dates: start: 20190427
  3. CANDESARTAN [Concomitant]
     Active Substance: CANDESARTAN
     Indication: Hypertension
     Dates: start: 20190427
  4. TORSEMIDE [Concomitant]
     Active Substance: TORSEMIDE
     Indication: Oedema peripheral
     Dates: start: 20190405
  5. XIPAMIDE [Concomitant]
     Active Substance: XIPAMIDE
     Indication: Oedema peripheral
     Dates: start: 20190427
  6. TAFAMIDIS MEGLUMINE [Concomitant]
     Active Substance: TAFAMIDIS MEGLUMINE
     Indication: Amyloidosis
     Dosage: DOSAGE TEXT: PLACEBO; 20 MG OR 80 MG
     Route: 048
     Dates: start: 20171018, end: 20200724
  7. EPLERENONE [Concomitant]
     Active Substance: EPLERENONE
     Indication: Cardiac failure
     Dates: start: 201408
  8. ATORVASTATIN [Concomitant]
     Active Substance: ATORVASTATIN
     Indication: Hyperlipidaemia
     Dates: start: 20180125
  9. PANTOPRAZOLE SODIUM [Concomitant]
     Active Substance: PANTOPRAZOLE SODIUM
     Indication: Gastritis prophylaxis
     Dates: start: 20180205
  10. TEA [Concomitant]
     Active Substance: TEA LEAF
     Indication: Amyloidosis
     Dates: start: 201503
  11. PHENPROCOUMON [Concomitant]
     Active Substance: PHENPROCOUMON
     Indication: Thrombosis prophylaxis
     Dates: start: 20181113

REACTIONS (1)
  - Acute kidney injury [Recovered/Resolved with Sequelae]

NARRATIVE: CASE EVENT DATE: 20190621
